FAERS Safety Report 21712789 (Version 1)
Quarter: 2022Q4

REPORT INFORMATION
  Report Type: Spontaneous
  Country: US (occurrence: US)
  Receive Date: 20221212
  Receipt Date: 20221212
  Transmission Date: 20230113
  Serious: No
  Sender: FDA-Public Use
  Company Number: US-SA-SAC20221209000682

PATIENT
  Age: 43 Year
  Sex: Female

DRUGS (4)
  1. AUBAGIO [Suspect]
     Active Substance: TERIFLUNOMIDE
     Indication: Multiple sclerosis
     Dosage: 7 MG QD
     Route: 048
     Dates: start: 20220620
  2. FISH OIL [Concomitant]
     Active Substance: FISH OIL
     Dosage: UNK
  3. VITAMINA B7 [Concomitant]
     Dosage: UNK
  4. BIOTIN [Concomitant]
     Active Substance: BIOTIN
     Dosage: UNK

REACTIONS (1)
  - Alopecia [Unknown]
